FAERS Safety Report 5445097-5 (Version None)
Quarter: 2007Q3

REPORT INFORMATION
  Report Type: 
  Country: None (occurrence: None)
  Receive Date: 20070906
  Receipt Date: 20070831
  Transmission Date: 20080115
  Serious: Yes (Hospitalization, Other)
  Sender: FDA-Public Use
  Company Number: JP-PFIZER INC-2007068575

PATIENT
  Sex: Female

DRUGS (5)
  1. ZOLOFT [Suspect]
     Route: 048
  2. HALCION [Suspect]
     Route: 048
  3. NITRAZEPAM [Suspect]
     Route: 048
  4. DEPAS [Suspect]
     Route: 048
  5. SEPAZON [Suspect]
     Route: 048

REACTIONS (3)
  - ALTERED STATE OF CONSCIOUSNESS [None]
  - HEART RATE DECREASED [None]
  - OVERDOSE [None]
